FAERS Safety Report 16960977 (Version 1)
Quarter: 2019Q4

REPORT INFORMATION
  Report Type: Report from Study
  Country: JP (occurrence: JP)
  Receive Date: 20191025
  Receipt Date: 20191025
  Transmission Date: 20200122
  Serious: Yes (Hospitalization, Other)
  Sender: FDA-Public Use
  Company Number: JP-ROCHE-2446652

PATIENT
  Age: 67 Year
  Sex: Male
  Weight: 56 kg

DRUGS (61)
  1. TACROLIMUS. [Suspect]
     Active Substance: TACROLIMUS
     Indication: PROPHYLAXIS AGAINST TRANSPLANT REJECTION
     Route: 048
     Dates: start: 20180802, end: 20180807
  2. TACROLIMUS. [Suspect]
     Active Substance: TACROLIMUS
     Route: 048
     Dates: start: 20181004, end: 20181018
  3. TACROLIMUS. [Suspect]
     Active Substance: TACROLIMUS
     Route: 048
     Dates: start: 20181019, end: 20181108
  4. LOXOPROFEN SODIUM HYDRATE [Concomitant]
     Active Substance: LOXOPROFEN SODIUM DIHYDRATE
     Route: 048
     Dates: start: 20190726, end: 20190726
  5. METHYLPREDNISOLONE. [Concomitant]
     Active Substance: METHYLPREDNISOLONE
     Route: 042
     Dates: start: 20180810, end: 20180810
  6. RASILEZ [Concomitant]
     Active Substance: ALISKIREN
     Route: 048
     Dates: start: 20180804
  7. MOSAPRIDE CITRATE DIHYDRATE [Concomitant]
     Active Substance: MOSAPRIDE CITRATE DIHYDRATE
     Route: 048
     Dates: start: 20180804
  8. TACROLIMUS. [Suspect]
     Active Substance: TACROLIMUS
     Route: 048
     Dates: start: 20180913, end: 20180918
  9. TACROLIMUS. [Suspect]
     Active Substance: TACROLIMUS
     Route: 048
     Dates: start: 20181109, end: 20181209
  10. MEDROL [Suspect]
     Active Substance: METHYLPREDNISOLONE
     Indication: PROPHYLAXIS AGAINST TRANSPLANT REJECTION
     Route: 048
     Dates: start: 20180802, end: 20180807
  11. MYCOPHENOLATE MOFETIL. [Suspect]
     Active Substance: MYCOPHENOLATE MOFETIL
     Indication: PROPHYLAXIS AGAINST TRANSPLANT REJECTION
     Route: 048
     Dates: start: 20180801, end: 20180821
  12. MYCOPHENOLATE MOFETIL. [Suspect]
     Active Substance: MYCOPHENOLATE MOFETIL
     Route: 048
     Dates: start: 20181116, end: 20181202
  13. POLARAMINE [Concomitant]
     Active Substance: DEXCHLORPHENIRAMINE MALEATE
     Route: 048
     Dates: start: 20190726
  14. METHYLPREDNISOLONE. [Concomitant]
     Active Substance: METHYLPREDNISOLONE
     Route: 042
     Dates: start: 20180808, end: 20180808
  15. TELMISARTAN. [Concomitant]
     Active Substance: TELMISARTAN
     Route: 048
     Dates: start: 20180728
  16. FUROSEMIDE. [Concomitant]
     Active Substance: FUROSEMIDE
     Route: 048
     Dates: start: 20180804
  17. NIFEDIPINE. [Concomitant]
     Active Substance: NIFEDIPINE
     Indication: HYPERTENSION
     Route: 048
     Dates: start: 20180903
  18. SODIUM RABEPRAZOLE [Concomitant]
     Active Substance: RABEPRAZOLE SODIUM
     Route: 065
     Dates: start: 20180814
  19. RITUXIMAB. [Suspect]
     Active Substance: RITUXIMAB
     Indication: PROPHYLAXIS AGAINST TRANSPLANT REJECTION
     Route: 041
     Dates: start: 20180726, end: 20180726
  20. RITUXIMAB. [Suspect]
     Active Substance: RITUXIMAB
     Route: 041
     Dates: start: 20180801, end: 20180801
  21. TACROLIMUS. [Suspect]
     Active Substance: TACROLIMUS
     Route: 048
     Dates: start: 20180831, end: 20180912
  22. TACROLIMUS. [Suspect]
     Active Substance: TACROLIMUS
     Route: 048
     Dates: start: 20180808, end: 20180813
  23. MEDROL [Suspect]
     Active Substance: METHYLPREDNISOLONE
     Route: 048
     Dates: start: 20180827, end: 20180901
  24. MEDROL [Suspect]
     Active Substance: METHYLPREDNISOLONE
     Route: 048
     Dates: start: 20180910, end: 20180916
  25. MEDROL [Suspect]
     Active Substance: METHYLPREDNISOLONE
     Route: 048
     Dates: start: 20180917
  26. MYCOPHENOLATE MOFETIL. [Suspect]
     Active Substance: MYCOPHENOLATE MOFETIL
     Route: 048
     Dates: start: 20181022, end: 20181115
  27. RENAGEL [Concomitant]
     Active Substance: SEVELAMER HYDROCHLORIDE
     Indication: HYPERPHOSPHATAEMIA
     Route: 048
     Dates: start: 20180804
  28. BASILIXIMAB [Suspect]
     Active Substance: BASILIXIMAB
     Route: 042
     Dates: start: 20180812, end: 20180812
  29. BASILIXIMAB [Concomitant]
     Active Substance: BASILIXIMAB
  30. CARVEDILOL. [Concomitant]
     Active Substance: CARVEDILOL
     Route: 065
  31. ESOMEPRAZOLE. [Concomitant]
     Active Substance: ESOMEPRAZOLE MAGNESIUM
     Route: 048
     Dates: start: 20180813
  32. NIFEDIPINE. [Concomitant]
     Active Substance: NIFEDIPINE
     Indication: HYPERTENSION
     Route: 048
     Dates: start: 20180903
  33. JUSO [Concomitant]
     Active Substance: SODIUM BICARBONATE
     Route: 048
     Dates: start: 20180928
  34. TACROLIMUS. [Suspect]
     Active Substance: TACROLIMUS
     Route: 048
     Dates: start: 20180814, end: 20180830
  35. TACROLIMUS. [Suspect]
     Active Substance: TACROLIMUS
     Route: 048
     Dates: start: 20180919, end: 20191003
  36. MEDROL [Suspect]
     Active Substance: METHYLPREDNISOLONE
     Route: 048
     Dates: start: 20180818, end: 20180826
  37. METHYLPREDNISOLONE. [Concomitant]
     Active Substance: METHYLPREDNISOLONE
     Route: 042
     Dates: start: 20180726, end: 20180726
  38. METHYLPREDNISOLONE. [Concomitant]
     Active Substance: METHYLPREDNISOLONE
     Route: 042
     Dates: start: 20180807, end: 20180807
  39. DOXAZOSIN [Concomitant]
     Active Substance: DOXAZOSIN MESYLATE
     Route: 048
     Dates: start: 20180804
  40. CALFINA [ALFACALCIDOL] [Concomitant]
     Active Substance: ALFACALCIDOL
     Indication: OSTEOPOROSIS
     Route: 065
     Dates: start: 20180725
  41. CILNIDIPINE [Concomitant]
     Active Substance: CILNIDIPINE
     Route: 048
     Dates: start: 20180903
  42. BASILIXIMAB [Suspect]
     Active Substance: BASILIXIMAB
     Indication: PROPHYLAXIS AGAINST TRANSPLANT REJECTION
     Route: 042
     Dates: start: 20180808, end: 20180808
  43. DEXCHLORPHENIRAMINE MALEATE. [Concomitant]
     Active Substance: DEXCHLORPHENIRAMINE MALEATE
  44. METHYLPREDNISOLONE. [Concomitant]
     Active Substance: METHYLPREDNISOLONE
     Route: 042
     Dates: start: 20180801, end: 20180801
  45. ALLOPURINOL. [Concomitant]
     Active Substance: ALLOPURINOL
     Indication: HYPERURICAEMIA
     Route: 048
     Dates: start: 20180725
  46. DAIPHEN [Concomitant]
     Active Substance: SULFAMETHOXAZOLE\TRIMETHOPRIM
     Route: 048
     Dates: start: 20180919
  47. MEDROL [Suspect]
     Active Substance: METHYLPREDNISOLONE
     Route: 048
     Dates: start: 20180902, end: 20180909
  48. MYCOPHENOLATE MOFETIL. [Suspect]
     Active Substance: MYCOPHENOLATE MOFETIL
     Route: 048
     Dates: start: 20181021, end: 20181021
  49. LOXOPROFEN SODIUM HYDRATE [Concomitant]
     Active Substance: LOXOPROFEN SODIUM DIHYDRATE
     Route: 048
     Dates: start: 20190801, end: 20190801
  50. METHYLPREDNISOLONE. [Concomitant]
     Active Substance: METHYLPREDNISOLONE
     Route: 042
     Dates: start: 20180809, end: 20180809
  51. AMLODIPINE [Concomitant]
     Active Substance: AMLODIPINE BESYLATE
     Route: 048
     Dates: start: 20180804
  52. REMITCH [Concomitant]
     Active Substance: NALFURAFINE HYDROCHLORIDE
     Route: 048
     Dates: start: 20180725
  53. ALDOMET [Concomitant]
     Active Substance: METHYLDOPA
     Route: 048
     Dates: start: 20180804
  54. MIYA-BM [Concomitant]
     Active Substance: CLOSTRIDIUM BUTYRICUM SPORES STRAIN M-55
     Route: 048
     Dates: start: 20181115
  55. TACROLIMUS. [Suspect]
     Active Substance: TACROLIMUS
     Route: 048
     Dates: start: 20181209, end: 20181209
  56. MEDROL [Suspect]
     Active Substance: METHYLPREDNISOLONE
     Route: 048
     Dates: start: 20180814, end: 20180817
  57. MEDROL [Suspect]
     Active Substance: METHYLPREDNISOLONE
     Route: 048
     Dates: start: 20180917
  58. MYCOPHENOLATE MOFETIL. [Suspect]
     Active Substance: MYCOPHENOLATE MOFETIL
     Route: 048
     Dates: start: 20180822, end: 20181020
  59. METHYLPREDNISOLONE SODIUM SUCCINATE. [Concomitant]
     Active Substance: METHYLPREDNISOLONE SODIUM SUCCINATE
  60. PRECIPITATED CALCIUM CARBONATE [Concomitant]
     Active Substance: CALCIUM CARBONATE
     Route: 048
     Dates: start: 20180725
  61. REBAMIPIDE [Concomitant]
     Active Substance: REBAMIPIDE
     Indication: CHRONIC GASTRITIS
     Route: 048
     Dates: start: 20180804

REACTIONS (13)
  - Hepatitis B virus test positive [Recovered/Resolved]
  - Bronchopulmonary aspergillosis [Recovered/Resolved]
  - Cytomegalovirus infection [Recovered/Resolved]
  - Hypertonic bladder [Not Recovered/Not Resolved]
  - Diarrhoea [Not Recovered/Not Resolved]
  - Liver disorder [Not Recovered/Not Resolved]
  - Scrotal ulcer [Recovered/Resolved]
  - Bronchitis [Recovered/Resolved]
  - Cerebral infarction [Not Recovered/Not Resolved]
  - Hyponatraemia [Not Recovered/Not Resolved]
  - Mania [Not Recovered/Not Resolved]
  - Hyperkalaemia [Not Recovered/Not Resolved]
  - Urinary fistula [Recovered/Resolved]

NARRATIVE: CASE EVENT DATE: 20180809
